FAERS Safety Report 8311091-X (Version None)
Quarter: 2012Q2

REPORT INFORMATION
  Report Type: 
  Country: None (occurrence: None)
  Receive Date: 20120425
  Receipt Date: 20120417
  Transmission Date: 20120825
  Serious: Yes (Hospitalization)
  Sender: FDA-Public Use
  Company Number: SE-B.I. PHARMACEUTICALS,INC./RIDGEFIELD-2012-SW-00323SW

PATIENT
  Sex: Female
  Weight: 65 kg

DRUGS (2)
  1. PRADAXA [Suspect]
     Indication: THROMBOSIS PROPHYLAXIS
     Dosage: 150 MG
     Route: 048
     Dates: start: 20120411
  2. CORTISONE ACETATE [Concomitant]
     Indication: POLYMYALGIA RHEUMATICA

REACTIONS (1)
  - SKIN ULCER [None]
